FAERS Safety Report 17367848 (Version 1)
Quarter: 2020Q1

REPORT INFORMATION
  Report Type: Spontaneous
  Country: JP (occurrence: JP)
  Receive Date: 20200204
  Receipt Date: 20200204
  Transmission Date: 20200409
  Serious: Yes (Other)
  Sender: FDA-Public Use
  Company Number: JP-ASTRAZENECA-2020SE15636

PATIENT
  Sex: Female

DRUGS (2)
  1. IRESSA [Suspect]
     Active Substance: GEFITINIB
     Indication: NON-SMALL CELL LUNG CANCER
     Dosage: DOSE UNKNOWN, ON MONDAYS AND THURSDAYS
     Route: 048
  2. IRESSA [Suspect]
     Active Substance: GEFITINIB
     Indication: NON-SMALL CELL LUNG CANCER
     Route: 048

REACTIONS (6)
  - Malignant neoplasm progression [Unknown]
  - Eczema [Unknown]
  - Off label use [Unknown]
  - Nail disorder [Unknown]
  - Diarrhoea [Unknown]
  - Cutaneous symptom [Unknown]
